FAERS Safety Report 7832941-7 (Version None)
Quarter: 2011Q4

REPORT INFORMATION
  Report Type: 
  Country: None (occurrence: None)
  Receive Date: 20111019
  Receipt Date: 20111006
  Transmission Date: 20120403
  Serious: Yes (Hospitalization, Other)
  Sender: FDA-Public Use
  Company Number: AUR-APL-2011-05429

PATIENT
  Age: 81 Year
  Sex: Female

DRUGS (4)
  1. METFORMIN HCL [Concomitant]
  2. FUROSEMIDE [Concomitant]
  3. RAMIPRIL [Suspect]
     Indication: PRODUCT USED FOR UNKNOWN INDICATION
     Dosage: (10 MG, 1 D),
  4. DIGOXIN [Suspect]
     Indication: PRODUCT USED FOR UNKNOWN INDICATION
     Dosage: (0.125 MG, 1 D)

REACTIONS (6)
  - TOXICITY TO VARIOUS AGENTS [None]
  - DYSPNOEA [None]
  - HYPERKALAEMIA [None]
  - BLOOD UREA INCREASED [None]
  - BLOOD GLUCOSE INCREASED [None]
  - ASTHENIA [None]
